FAERS Safety Report 4957810-1 (Version None)
Quarter: 2006Q1

REPORT INFORMATION
  Report Type: 
  Country: None (occurrence: None)
  Receive Date: 20060324
  Receipt Date: 20060313
  Transmission Date: 20060701
  Serious: Yes (Other)
  Sender: FDA-Public Use
  Company Number: DE-2006-005641

PATIENT
  Sex: Female

DRUGS (1)
  1. BETAFERON                 (INTERFERON BETA-1B) [Suspect]
     Dosage: SUBCUTANEOUS
     Route: 058

REACTIONS (1)
  - BREAST CANCER FEMALE [None]
